FAERS Safety Report 6553029-1 (Version None)
Quarter: 2010Q1

REPORT INFORMATION
  Report Type: 
  Country: None (occurrence: None)
  Receive Date: 20100125
  Receipt Date: 20100106
  Transmission Date: 20100710
  Serious: Yes (Hospitalization)
  Sender: FDA-Public Use
  Company Number: 2010AC000027

PATIENT
  Sex: Male

DRUGS (6)
  1. DIGOXIN [Suspect]
     Dosage: 250 MCG; QD; PO
     Route: 048
     Dates: start: 20020701
  2. SULFASALAZINE [Concomitant]
  3. VERAPAMIL [Concomitant]
  4. WARFARIN SODIUM [Concomitant]
  5. HYDROCODONE [Concomitant]
  6. INSULIN [Concomitant]

REACTIONS (4)
  - ECONOMIC PROBLEM [None]
  - EMOTIONAL DISORDER [None]
  - PAIN [None]
  - UNEVALUABLE EVENT [None]
